FAERS Safety Report 5447612-4 (Version None)
Quarter: 2007Q3

REPORT INFORMATION
  Report Type: 
  Country: None (occurrence: None)
  Receive Date: 20070905
  Receipt Date: 20070905
  Transmission Date: 20080115
  Serious: Yes (Life-Threatening)
  Sender: FDA-Public Use
  Company Number: None

PATIENT
  Age: 15 Year
  Sex: Female
  Weight: 40.1 kg

DRUGS (17)
  1. PROGRAF [Suspect]
     Indication: IMMUNOSUPPRESSANT DRUG THERAPY
     Dosage: 1 MG QAM PO
     Route: 048
     Dates: start: 20070826, end: 20070830
  2. PROGRAF [Suspect]
     Indication: LUNG TRANSPLANT
     Dosage: 1 MG QAM PO
     Route: 048
     Dates: start: 20070826, end: 20070830
  3. PROGRAF [Suspect]
     Dosage: 1.5 MG QPM PO
     Route: 048
  4. ULTRASE MT [Concomitant]
  5. ALBUTEROL [Concomitant]
  6. ADEK VITAMIN [Concomitant]
  7. AZATHIOPRINE [Concomitant]
  8. DOCUSATE [Concomitant]
  9. ITRACONAZOLE [Concomitant]
  10. KEPPRA [Concomitant]
  11. PREDNISONE [Concomitant]
  12. RANITIDINE [Concomitant]
  13. SEPTRA DS [Concomitant]
  14. MAGNESIUM GLUCONATE [Concomitant]
  15. GANCICLOVIR [Concomitant]
  16. MEROPENEM [Concomitant]
  17. TOBRAMYCIN [Concomitant]

REACTIONS (2)
  - CONVULSION [None]
  - HEADACHE [None]
